FAERS Safety Report 9863030 (Version 3)
Quarter: 2015Q2

REPORT INFORMATION
  Report Type: Report from Study
  Country: BR (occurrence: BR)
  Receive Date: 20140203
  Receipt Date: 20150616
  Transmission Date: 20150821
  Serious: Yes (Other)
  Sender: FDA-Public Use
  Company Number: PHHY2014BR010699

PATIENT
  Sex: Male
  Weight: 63 kg

DRUGS (3)
  1. CALCIUM [Concomitant]
     Active Substance: CALCIUM
     Indication: PRODUCT USED FOR UNKNOWN INDICATION
     Dosage: 2 DF, QD
     Route: 048
  2. PURAN [Concomitant]
     Active Substance: LEVOTHYROXINE SODIUM
     Indication: THYROIDECTOMY
     Dosage: 1 DF, QD
     Route: 048
     Dates: start: 2011
  3. SANDOSTATIN LAR DEPOT [Suspect]
     Active Substance: OCTREOTIDE ACETATE
     Indication: ACRAL OVERGROWTH
     Dosage: 30 MG (1 AMPULE), QMO
     Route: 030
     Dates: end: 20150423

REACTIONS (5)
  - Musculoskeletal stiffness [Unknown]
  - Neoplasm malignant [Unknown]
  - Motor dysfunction [Unknown]
  - Parkinsonism [Not Recovered/Not Resolved]
  - Multiple endocrine neoplasia Type 1 [Unknown]

NARRATIVE: CASE EVENT DATE: 2011
